FAERS Safety Report 4528084-0 (Version None)
Quarter: 2004Q4

REPORT INFORMATION
  Report Type: 
  Country: None (occurrence: None)
  Receive Date: 20041124
  Receipt Date: 20031024
  Transmission Date: 20050328
  Serious: Yes (Other)
  Sender: FDA-Public Use
  Company Number: 2003034927

PATIENT
  Age: 76 Year
  Sex: Female
  Weight: 90.7194 kg

DRUGS (12)
  1. TIKOSYN [Suspect]
     Indication: ATRIAL FIBRILLATION
     Dosage: 250 MCG (BID), ORAL
     Route: 048
     Dates: start: 20030801
  2. PRILOCAINE (PRILOCAINE) [Suspect]
     Indication: TOOTH REPAIR
     Dosage: 144 MG
     Dates: start: 20030815, end: 20030815
  3. ASPIRIN [Concomitant]
  4. SOTALOL HCL [Concomitant]
  5. LEVOTHYROXINE SODIUM [Concomitant]
  6. GLYBURIDE [Concomitant]
  7. METFORMIN (METFORMIN) [Concomitant]
  8. LOSARTAN POTASSIUM [Concomitant]
  9. WARFARIN SODIUM [Concomitant]
  10. FUROSEMIDE [Concomitant]
  11. POTASSIUM CHLORIDE [Concomitant]
  12. DIURETICS (DIURETICS) [Concomitant]

REACTIONS (6)
  - CARDIAC DISORDER [None]
  - CARDIOVERSION [None]
  - DENTAL CARIES [None]
  - DRUG INTERACTION [None]
  - HEART RATE INCREASED [None]
  - PALPITATIONS [None]
